FAERS Safety Report 7523971-3 (Version None)
Quarter: 2011Q2

REPORT INFORMATION
  Report Type: 
  Country: None (occurrence: None)
  Receive Date: 20110603
  Receipt Date: 20110527
  Transmission Date: 20111010
  Serious: Yes (Death)
  Sender: FDA-Public Use
  Company Number: US-CELGENEUS-163-21880-11053880

PATIENT
  Age: 45 Year
  Sex: Female

DRUGS (9)
  1. METRONIDAZOLE [Concomitant]
     Route: 065
  2. GLEEVEC [Concomitant]
     Route: 065
  3. REVLIMID [Suspect]
     Dosage: 15 MILLIGRAM
     Route: 048
     Dates: start: 20110201, end: 20110201
  4. ACYCLOVIR [Concomitant]
     Route: 065
  5. AMBIEN [Concomitant]
     Route: 065
  6. ZOFRAN [Concomitant]
     Route: 065
  7. FLUDROCORTISONE ACETATE [Concomitant]
     Route: 065
  8. NEUPOGEN [Concomitant]
     Route: 065
  9. LEVETIRACETAM [Concomitant]
     Route: 065

REACTIONS (1)
  - DEATH [None]
